FAERS Safety Report 12988402 (Version 5)
Quarter: 2017Q2

REPORT INFORMATION
  Report Type: Spontaneous
  Country: US (occurrence: US)
  Receive Date: 20161130
  Receipt Date: 20170531
  Transmission Date: 20170830
  Serious: Yes (Death)
  Sender: FDA-Public Use
  Company Number: US-ALLERGAN-1678379US

PATIENT
  Age: 82 Year
  Sex: Male

DRUGS (5)
  1. LUMIGAN [Suspect]
     Active Substance: BIMATOPROST
     Indication: GLAUCOMA
     Dosage: UNK UNK, BID
     Route: 047
  2. COMBIGAN [Suspect]
     Active Substance: BRIMONIDINE TARTRATE\TIMOLOL MALEATE
     Indication: GLAUCOMA
     Dosage: UNK
     Route: 047
  3. NAMENDA [Suspect]
     Active Substance: MEMANTINE HYDROCHLORIDE
     Indication: DEMENTIA ALZHEIMER^S TYPE
     Dosage: 10 MG, BID
     Route: 048
  4. AMIODARONE [Concomitant]
     Active Substance: AMIODARONE
     Indication: ATRIAL FIBRILLATION
     Dosage: UNK
     Route: 048
  5. VITAMIN C [Concomitant]
     Active Substance: ASCORBIC ACID
     Indication: SUPPLEMENTATION THERAPY
     Dosage: UNK
     Route: 048

REACTIONS (10)
  - Blood pressure fluctuation [Unknown]
  - Dementia [Recovered/Resolved]
  - Death [Fatal]
  - Fall [Recovering/Resolving]
  - Infection [Recovering/Resolving]
  - Malaise [Recovering/Resolving]
  - Eye infection [Recovering/Resolving]
  - Muscle twitching [Recovering/Resolving]
  - Ocular hyperaemia [Recovering/Resolving]
  - Eye injury [Recovering/Resolving]

NARRATIVE: CASE EVENT DATE: 20170308
